FAERS Safety Report 17925669 (Version 3)
Quarter: 2020Q3

REPORT INFORMATION
  Report Type: Spontaneous
  Country: US (occurrence: US)
  Receive Date: 20200622
  Receipt Date: 20200731
  Transmission Date: 20201103
  Serious: Yes (Other)
  Sender: FDA-Public Use
  Company Number: US-009507513-2006USA007576

PATIENT
  Age: 16 Year
  Sex: Female
  Weight: 67.39 kg

DRUGS (1)
  1. NEXPLANON [Suspect]
     Active Substance: ETONOGESTREL
     Indication: CONTRACEPTION
     Dosage: 1 ROD EVERY 3 YEARS, INTO LEFT UPPER ARM
     Route: 059
     Dates: start: 20200527, end: 20200623

REACTIONS (3)
  - Medical device site discomfort [Unknown]
  - Device dislocation [Recovered/Resolved]
  - Implant site pain [Unknown]

NARRATIVE: CASE EVENT DATE: 20200527
